FAERS Safety Report 5330988-6 (Version None)
Quarter: 2007Q2

REPORT INFORMATION
  Report Type: 
  Country: None (occurrence: None)
  Receive Date: 20070522
  Receipt Date: 20070511
  Transmission Date: 20071010
  Serious: Yes (Hospitalization)
  Sender: FDA-Public Use
  Company Number: US-AMGEN-US221483

PATIENT
  Sex: Female
  Weight: 63.6 kg

DRUGS (1)
  1. ENBREL [Suspect]
     Indication: ANKYLOSING SPONDYLITIS
     Route: 058
     Dates: start: 20030701

REACTIONS (3)
  - ANKYLOSING SPONDYLITIS [None]
  - INJECTION SITE PAIN [None]
  - NEOPLASM PROPHYLAXIS [None]
